FAERS Safety Report 19762943 (Version 1)
Quarter: 2021Q3

REPORT INFORMATION
  Report Type: Spontaneous
  Country: US (occurrence: US)
  Receive Date: 20210830
  Receipt Date: 20210830
  Transmission Date: 20211014
  Serious: Yes (Death, Other)
  Sender: FDA-Public Use
  Company Number: None

PATIENT
  Age: 64 Year
  Sex: Male
  Weight: 130.5 kg

DRUGS (17)
  1. OXYCODONE/APAP [Concomitant]
     Active Substance: ACETAMINOPHEN\OXYCODONE HYDROCHLORIDE
  2. DICYCLOMINE [Concomitant]
     Active Substance: DICYCLOMINE HYDROCHLORIDE
  3. POTASSIUM CITRATE. [Concomitant]
     Active Substance: POTASSIUM CITRATE
  4. VITAMIN B12 [Concomitant]
     Active Substance: CYANOCOBALAMIN
  5. REGEN?COV [Suspect]
     Active Substance: CASIRIVIMAB\IMDEVIMAB
     Indication: COVID-19
     Dosage: ?          OTHER FREQUENCY:ONCE;?
     Route: 042
     Dates: start: 20210827, end: 20210827
  6. TAMSULOSIN [Concomitant]
     Active Substance: TAMSULOSIN
  7. VITAMIN D [Concomitant]
     Active Substance: VITAMIN D NOS
  8. BUPROPION. [Concomitant]
     Active Substance: BUPROPION
  9. CREION [Concomitant]
  10. MORPHINE [Concomitant]
     Active Substance: MORPHINE
  11. CENTRUM [Concomitant]
     Active Substance: VITAMINS
  12. LISINOPRIL/HCTZ [Concomitant]
     Active Substance: HYDROCHLOROTHIAZIDE\LISINOPRIL
  13. METOPROLOL. [Concomitant]
     Active Substance: METOPROLOL
  14. CPAP MACHINE [Concomitant]
  15. LEXAPRO [Concomitant]
     Active Substance: ESCITALOPRAM OXALATE
  16. ERYTHROMYCIN OINTMENT [Concomitant]
     Active Substance: ERYTHROMYCIN
  17. ANTIBIOTIC DROP [Concomitant]

REACTIONS (9)
  - Dyspnoea [None]
  - Pulmonary embolism [None]
  - Pyrexia [None]
  - Dizziness [None]
  - Gait disturbance [None]
  - Death [None]
  - Chills [None]
  - Hyperhidrosis [None]
  - Pulmonary congestion [None]

NARRATIVE: CASE EVENT DATE: 20210827
